FAERS Safety Report 8440525-5 (Version None)
Quarter: 2012Q2

REPORT INFORMATION
  Report Type: 
  Country: None (occurrence: None)
  Receive Date: 20120615
  Receipt Date: 20120606
  Transmission Date: 20120825
  Serious: Yes (Other)
  Sender: FDA-Public Use
  Company Number: ES-BRISTOL-MYERS SQUIBB COMPANY-16498008

PATIENT
  Age: 50 Year
  Sex: Male

DRUGS (4)
  1. ALLOPURINOL [Concomitant]
     Dosage: 1 DF: 300 UNITS NOS  300/24HRS
  2. HYDREA [Suspect]
     Dosage: 1DF=1 TAB
     Dates: start: 20120320, end: 20120327
  3. SPRYCEL [Suspect]
     Indication: BLAST CRISIS IN MYELOGENOUS LEUKAEMIA
     Dates: start: 20120324, end: 20120423
  4. IMATINIB MESYLATE [Concomitant]

REACTIONS (3)
  - BONE MARROW FAILURE [None]
  - RESPIRATORY TRACT INFECTION [None]
  - SUBCUTANEOUS ABSCESS [None]
